FAERS Safety Report 9018591 (Version 1)
Quarter: 2013Q1

REPORT INFORMATION
  Report Type: Spontaneous
  Country: US (occurrence: US)
  Receive Date: 20130118
  Receipt Date: 20130118
  Transmission Date: 20140127
  Serious: No
  Sender: FDA-Public Use
  Company Number: US-PFIZER INC-2013018336

PATIENT
  Sex: 0

DRUGS (1)
  1. PRISTIQ [Suspect]
     Dosage: 50 MG, UNK

REACTIONS (2)
  - Withdrawal syndrome [Unknown]
  - Chest pain [Not Recovered/Not Resolved]
